FAERS Safety Report 7201759-0 (Version None)
Quarter: 2010Q4

REPORT INFORMATION
  Report Type: 
  Country: None (occurrence: None)
  Receive Date: 20101229
  Receipt Date: 20101217
  Transmission Date: 20110411
  Serious: Yes (Other)
  Sender: FDA-Public Use
  Company Number: DE-ROCHE-750180

PATIENT
  Age: 32 Year
  Sex: Female

DRUGS (3)
  1. HERCEPTIN [Suspect]
     Indication: BREAST CANCER
     Dosage: CURRENTLY 2ND CYCLE
     Route: 065
  2. TAXOTERE [Concomitant]
     Dosage: CURRENTLY 2ND CYCLE
  3. CARBOPLATIN [Concomitant]
     Dosage: CURRENTLY 2ND CYCLE

REACTIONS (2)
  - ATRIOVENTRICULAR DISSOCIATION [None]
  - SINUS BRADYCARDIA [None]
